FAERS Safety Report 18596976 (Version 1)
Quarter: 2020Q4

REPORT INFORMATION
  Report Type: Report from Study
  Country: GB (occurrence: GB)
  Receive Date: 20201209
  Receipt Date: 20201209
  Transmission Date: 20210114
  Serious: Yes (Hospitalization, Other)
  Sender: FDA-Public Use
  Company Number: GB-JNJFOC-20190341584

PATIENT
  Sex: Female
  Weight: 110 kg

DRUGS (11)
  1. COCODAMOL [Concomitant]
     Active Substance: ACETAMINOPHEN\CODEINE PHOSPHATE
     Dates: start: 20030101
  2. TEMAZEPAM. [Concomitant]
     Active Substance: TEMAZEPAM
     Dates: start: 20040101
  3. AMLODIPINE [Concomitant]
     Active Substance: AMLODIPINE BESYLATE
     Dates: start: 20110801
  4. DOXAZOSIN [Concomitant]
     Active Substance: DOXAZOSIN MESYLATE
     Dates: start: 20040501
  5. PAROXETINE. [Concomitant]
     Active Substance: PAROXETINE
     Dates: start: 20120501
  6. STELARA [Suspect]
     Active Substance: USTEKINUMAB
     Indication: PSORIASIS
     Route: 058
     Dates: start: 20161003
  7. METFORMIN [Concomitant]
     Active Substance: METFORMIN HYDROCHLORIDE
     Dates: start: 20121201
  8. LANSOPRAZOLE. [Concomitant]
     Active Substance: LANSOPRAZOLE
     Dates: start: 20031030
  9. AMITRIPTYLLINE [Concomitant]
     Active Substance: AMITRIPTYLINE
     Dates: start: 20010801
  10. LOSARTAN. [Concomitant]
     Active Substance: LOSARTAN
     Dates: start: 20031125
  11. ATORVASTATIN [Concomitant]
     Active Substance: ATORVASTATIN
     Dates: start: 20130101

REACTIONS (4)
  - Psoriatic arthropathy [Recovered/Resolved]
  - Acute kidney injury [Unknown]
  - Fall [Recovered/Resolved]
  - Influenza [Unknown]

NARRATIVE: CASE EVENT DATE: 20180517
